FAERS Safety Report 20151682 (Version 2)
Quarter: 2021Q4

REPORT INFORMATION
  Report Type: Spontaneous
  Country: US (occurrence: US)
  Receive Date: 20211206
  Receipt Date: 20211222
  Transmission Date: 20220304
  Serious: No
  Sender: FDA-Public Use
  Company Number: US-GW PHARMA-202111USGW05959

PATIENT

DRUGS (2)
  1. EPIDIOLEX [Suspect]
     Active Substance: CANNABIDIOL
     Indication: Lennox-Gastaut syndrome
     Dosage: 160 MILLIGRAM, BID, (DOSE DECREASED)
     Route: 048
     Dates: start: 20190226
  2. EPIDIOLEX [Suspect]
     Active Substance: CANNABIDIOL
     Indication: Idiopathic generalised epilepsy

REACTIONS (2)
  - Hypersomnia [Unknown]
  - Somnolence [Unknown]
